FAERS Safety Report 6129690-2 (Version None)
Quarter: 2009Q1

REPORT INFORMATION
  Report Type: 
  Country: None (occurrence: None)
  Receive Date: 20090323
  Receipt Date: 20090323
  Transmission Date: 20090719
  Serious: Yes (Hospitalization)
  Sender: FDA-Public Use
  Company Number: None

PATIENT
  Age: 54 Year
  Sex: Male
  Weight: 69.8539 kg

DRUGS (16)
  1. GEMCITABINE [Suspect]
     Indication: PANCREATIC CARCINOMA
     Dosage: AS ABOVE
     Route: 042
     Dates: start: 20090113
  2. TARCEVA [Suspect]
     Indication: PANCREATIC CARCINOMA
     Dosage: AS ABOVE
     Dates: start: 20090113
  3. RADIATION 40CGY BID DAYS 1,2,8,9 [Suspect]
     Indication: PANCREATIC CARCINOMA
     Dosage: AS ABOVE
     Dates: start: 20081124
  4. PLAVIX [Concomitant]
  5. CRESTOR [Concomitant]
  6. METOPROLOL TARTRATE [Concomitant]
  7. ALTACE [Concomitant]
  8. ZETIA [Concomitant]
  9. ASPIRIN [Concomitant]
  10. FENTYNAL PATCH [Concomitant]
  11. M8 IR [Concomitant]
  12. COMPAZINE [Concomitant]
  13. ZOFRAN [Concomitant]
  14. CREON [Concomitant]
  15. ANTACID TAB [Concomitant]
  16. MOM PRN [Concomitant]

REACTIONS (1)
  - DEEP VEIN THROMBOSIS [None]
